FAERS Safety Report 9663920 (Version 4)
Quarter: 2013Q4

REPORT INFORMATION
  Report Type: Spontaneous
  Country: US (occurrence: US)
  Receive Date: 20131101
  Receipt Date: 20131209
  Transmission Date: 20140711
  Serious: No
  Sender: FDA-Public Use
  Company Number: US-VERTEX PHARMACEUTICALS INC-2013-010770

PATIENT
  Age: 57 Year
  Sex: Female
  Weight: 86 kg

DRUGS (9)
  1. INCIVEK [Suspect]
     Indication: HEPATITIS C
     Dosage: 750 MG, TID
     Route: 048
     Dates: start: 20131028
  2. COPEGUS [Suspect]
     Indication: HEPATITIS C
     Dosage: 600 MG, BID
     Route: 048
     Dates: start: 20131028
  3. PEGASYS [Suspect]
     Indication: HEPATITIS C
     Dosage: 180 ?G, QW
     Route: 058
     Dates: start: 20131028
  4. HYDROCHLOROTHIAZIDE [Concomitant]
     Dosage: 25 MG, QD
  5. LAMOTRIGINE [Concomitant]
     Dosage: 25 MG, UNK
  6. LISINOPRIL [Concomitant]
     Dosage: 5 MG, QD
  7. PROAIR HFA [Concomitant]
     Dosage: 1-2 PUFFS, 4 TIMES
  8. PROMETHAZINE [Concomitant]
     Dosage: 6.5 MG/5 ML, 1-2 TSP, BED TIME
  9. TRAZODONE [Concomitant]
     Dosage: 50 MG, QD

REACTIONS (21)
  - Depression [Unknown]
  - Influenza like illness [Recovered/Resolved]
  - Blood pressure increased [Not Recovered/Not Resolved]
  - Amnesia [Unknown]
  - Headache [Not Recovered/Not Resolved]
  - Pyrexia [Recovered/Resolved]
  - Pain [Not Recovered/Not Resolved]
  - Insomnia [Not Recovered/Not Resolved]
  - Chills [Recovered/Resolved]
  - Abdominal pain lower [Unknown]
  - Abdominal distension [Unknown]
  - Arthralgia [Unknown]
  - Epistaxis [Unknown]
  - Pain in extremity [Unknown]
  - Abdominal mass [Unknown]
  - Alpha 1 foetoprotein increased [Unknown]
  - Anorectal discomfort [Unknown]
  - Proctalgia [Recovered/Resolved]
  - Anal pruritus [Recovered/Resolved]
  - Rash [Unknown]
  - Nausea [Unknown]
